FAERS Safety Report 7503884-3 (Version None)
Quarter: 2011Q2

REPORT INFORMATION
  Report Type: 
  Country: None (occurrence: None)
  Receive Date: 20110525
  Receipt Date: 20110426
  Transmission Date: 20111010
  Serious: Yes (Other)
  Sender: FDA-Public Use
  Company Number: US-BAYER-2011-037230

PATIENT
  Age: 28 Year
  Sex: Female

DRUGS (1)
  1. MIRENA [Suspect]
     Indication: CONTRACEPTION
     Dosage: UNK
     Route: 015
     Dates: start: 20090901, end: 20110309

REACTIONS (4)
  - BLADDER PROLAPSE [None]
  - PELVIC PROLAPSE [None]
  - CYSTOCELE [None]
  - INCONTINENCE [None]
